FAERS Safety Report 6807995-7 (Version None)
Quarter: 2010Q2

REPORT INFORMATION
  Report Type: 
  Country: None (occurrence: None)
  Receive Date: 20100629
  Receipt Date: 20090411
  Transmission Date: 20101027
  Serious: No
  Sender: FDA-Public Use
  Company Number: US-PFIZER INC-2009171620

PATIENT
  Sex: Female

DRUGS (3)
  1. ZYVOX [Suspect]
     Indication: SKIN INFECTION
  2. CUBICIN [Concomitant]
     Dosage: UNK
  3. TIGECYCLINE [Concomitant]
     Dosage: UNK

REACTIONS (1)
  - DRUG INEFFECTIVE [None]
